FAERS Safety Report 5848289-6 (Version None)
Quarter: 2008Q3

REPORT INFORMATION
  Report Type: 
  Country: None (occurrence: None)
  Receive Date: 20080818
  Receipt Date: 20080808
  Transmission Date: 20090109
  Serious: Yes (Hospitalization, Other)
  Sender: FDA-Public Use
  Company Number: CN-ABBOTT-08P-035-0461834-00

PATIENT
  Sex: Male

DRUGS (11)
  1. HUMIRA [Suspect]
     Indication: RHEUMATOID ARTHRITIS
     Route: 058
     Dates: start: 20080201, end: 20080418
  2. HUMIRA [Suspect]
     Route: 058
     Dates: start: 20071116, end: 20080124
  3. METHOTREXATE SODIUM [Concomitant]
     Indication: RHEUMATOID ARTHRITIS
     Dates: start: 20070802
  4. PREDNISONE [Concomitant]
     Indication: RHEUMATOID ARTHRITIS
     Dates: start: 20070802
  5. FOLIC ACID [Concomitant]
     Indication: DRUG LEVEL
     Dates: start: 20071002
  6. DICLOFENAC SODIUM [Concomitant]
     Indication: RHEUMATOID ARTHRITIS
     Dates: start: 20050620
  7. OMEPRAZOLE [Concomitant]
     Indication: PROPHYLAXIS AGAINST GASTROINTESTINAL ULCER
     Dates: start: 20070620
  8. CHINESE HERB [Concomitant]
     Indication: NASOPHARYNGITIS
     Dates: start: 20080410, end: 20080418
  9. CIPROFLOXACIN HCL [Concomitant]
     Indication: PNEUMONIA
     Dates: start: 20080430, end: 20080509
  10. CEFTAZIDIME [Concomitant]
     Indication: PNEUMONIA
     Dates: start: 20080430, end: 20080509
  11. ISONIAZID [Concomitant]
     Indication: ANTIBIOTIC PROPHYLAXIS
     Dates: start: 20071024, end: 20080429

REACTIONS (2)
  - LUNG SQUAMOUS CELL CARCINOMA STAGE UNSPECIFIED [None]
  - PULMONARY MASS [None]
